FAERS Safety Report 23172278 (Version 2)
Quarter: 2023Q4

REPORT INFORMATION
  Report Type: Report from Study
  Country: US (occurrence: US)
  Receive Date: 20231110
  Receipt Date: 20231117
  Transmission Date: 20240109
  Serious: Yes (Other)
  Sender: FDA-Public Use
  Company Number: US-SUN PHARMACEUTICAL INDUSTRIES LTD-2023R1-417544

PATIENT
  Sex: Male

DRUGS (3)
  1. CLOZAPINE [Interacting]
     Active Substance: CLOZAPINE
     Indication: Psychotic disorder
     Dosage: 400 MILLIGRAM
     Route: 048
  2. CLOZAPINE [Interacting]
     Active Substance: CLOZAPINE
     Dosage: 25 MILLIGRAM
     Route: 048
  3. LUVOX [Interacting]
     Active Substance: FLUVOXAMINE MALEATE
     Indication: Product used for unknown indication
     Dosage: UNK
     Route: 065

REACTIONS (2)
  - Toxicity to various agents [Unknown]
  - Drug interaction [Unknown]
